FAERS Safety Report 15361234 (Version 1)
Quarter: 2018Q3

REPORT INFORMATION
  Report Type: Spontaneous
  Country: US (occurrence: US)
  Receive Date: 20180907
  Receipt Date: 20180907
  Transmission Date: 20181010
  Serious: No
  Sender: FDA-Public Use
  Company Number: US-009507513-1808USA007461

PATIENT
  Age: 34 Year
  Sex: Female

DRUGS (1)
  1. NEXPLANON [Suspect]
     Active Substance: ETONOGESTREL
     Indication: CONTRACEPTION
     Dosage: 1 IMPLANT, EVERY 4 YEARS
     Route: 059
     Dates: start: 20160819

REACTIONS (9)
  - Metrorrhagia [Not Recovered/Not Resolved]
  - Circumstance or information capable of leading to medication error [Unknown]
  - Menstruation irregular [Not Recovered/Not Resolved]
  - Infection [Not Recovered/Not Resolved]
  - Inappropriate schedule of drug administration [Unknown]
  - Vaginal infection [Not Recovered/Not Resolved]
  - Polymenorrhoea [Not Recovered/Not Resolved]
  - Mood swings [Not Recovered/Not Resolved]
  - Headache [Not Recovered/Not Resolved]

NARRATIVE: CASE EVENT DATE: 201702
